FAERS Safety Report 5526415-6 (Version None)
Quarter: 2007Q4

REPORT INFORMATION
  Report Type: 
  Country: None (occurrence: None)
  Receive Date: 20071127
  Receipt Date: 20071115
  Transmission Date: 20080405
  Serious: Yes (Death)
  Sender: FDA-Public Use
  Company Number: US-PURDUE-USA_2007_0029569

PATIENT
  Age: 24 Year
  Sex: Male
  Weight: 91 kg

DRUGS (7)
  1. OXYCONTIN [Suspect]
     Indication: DRUG ABUSE
     Dosage: UNK MG, UNK
  2. XANAX [Suspect]
     Indication: DRUG ABUSE
  3. MDA [Suspect]
     Indication: DRUG ABUSE
  4. CARISOPRODOL [Suspect]
     Indication: DRUG ABUSE
  5. MEPROBAMATE [Suspect]
     Indication: DRUG ABUSE
     Dosage: UNK, UNK
  6. OXYMORPHONE HCL [Suspect]
     Indication: DRUG ABUSE
     Dosage: UNK, UNK
  7. MDA [Suspect]
     Dosage: UNK, UNK

REACTIONS (7)
  - ANOXIC ENCEPHALOPATHY [None]
  - ARRHYTHMIA [None]
  - BRAIN DEATH [None]
  - COMA [None]
  - LOSS OF CONSCIOUSNESS [None]
  - RESPIRATORY ARREST [None]
  - SUBSTANCE ABUSE [None]
